FAERS Safety Report 10208704 (Version 1)
Quarter: 2014Q2

REPORT INFORMATION
  Report Type: Spontaneous
  Country: US (occurrence: None)
  Receive Date: 20140529
  Receipt Date: 20140529
  Transmission Date: 20141212
  Serious: Yes (Hospitalization)
  Sender: FDA-Public Use
  Company Number: None

PATIENT
  Sex: Female

DRUGS (3)
  1. CYMBALTA [Suspect]
     Dosage: 1 CAPSULE QD ORAL
     Route: 048
     Dates: start: 20140521, end: 20140523
  2. LYRICA [Concomitant]
  3. LIDODERM 5% PATCH [Concomitant]

REACTIONS (4)
  - Syncope [None]
  - Dehydration [None]
  - Concussion [None]
  - Convulsion [None]
